FAERS Safety Report 24197442 (Version 2)
Quarter: 2024Q3

REPORT INFORMATION
  Report Type: Spontaneous
  Country: EG (occurrence: EG)
  Receive Date: 20240811
  Receipt Date: 20240901
  Transmission Date: 20241017
  Serious: Yes (Other)
  Sender: JOHNSON AND JOHNSON
  Company Number: EG-JNJFOC-20240817552

PATIENT
  Age: 37 Year
  Sex: Male
  Weight: 90 kg

DRUGS (2)
  1. REMICADE [Suspect]
     Active Substance: INFLIXIMAB
     Indication: Crohn^s disease
     Dosage: 4 VIALS OF REMICADE 100 MG IV INFUSION EVERY 2 MONTHS
     Route: 041
     Dates: start: 201201, end: 2019
  2. REMICADE [Suspect]
     Active Substance: INFLIXIMAB
     Route: 041
     Dates: start: 201201, end: 2020

REACTIONS (9)
  - Gastrointestinal fistula [Not Recovered/Not Resolved]
  - Gastrointestinal obstruction [Unknown]
  - Crohn^s disease [Not Recovered/Not Resolved]
  - Drug specific antibody [Unknown]
  - Drug ineffective [Unknown]
  - Bone pain [Unknown]
  - Arthralgia [Unknown]
  - Faeces discoloured [Unknown]
  - Off label use [Unknown]
